FAERS Safety Report 7229709-1 (Version None)
Quarter: 2011Q1

REPORT INFORMATION
  Report Type: 
  Country: None (occurrence: None)
  Receive Date: 20110117
  Receipt Date: 20110114
  Transmission Date: 20110831
  Serious: Yes (Other)
  Sender: FDA-Public Use
  Company Number: BR-ABBOTT-11P-020-0697405-00

PATIENT
  Sex: Male
  Weight: 86 kg

DRUGS (1)
  1. HUMIRA [Suspect]
     Indication: CROHN'S DISEASE
     Route: 058
     Dates: start: 20090101

REACTIONS (5)
  - PAIN [None]
  - DRUG INEFFECTIVE [None]
  - CROHN'S DISEASE [None]
  - ANORECTAL DISORDER [None]
  - GASTROINTESTINAL DISORDER [None]
